FAERS Safety Report 17686097 (Version 1)
Quarter: 2020Q2

REPORT INFORMATION
  Report Type: Report from Study
  Country: US (occurrence: US)
  Receive Date: 20200420
  Receipt Date: 20200420
  Transmission Date: 20200714
  Serious: Yes (Hospitalization, Other)
  Sender: FDA-Public Use
  Company Number: US-INCYTE CORPORATION-2020IN003599

PATIENT

DRUGS (1)
  1. JAKAFI [Suspect]
     Active Substance: RUXOLITINIB
     Indication: POLYCYTHAEMIA VERA
     Dosage: UNK
     Route: 065

REACTIONS (4)
  - Clostridium difficile infection [Recovered/Resolved]
  - Coronavirus infection [Recovering/Resolving]
  - Rash [Recovering/Resolving]
  - Sepsis [Recovered/Resolved]

NARRATIVE: CASE EVENT DATE: 2020
